FAERS Safety Report 12520880 (Version 1)
Quarter: 2016Q3

REPORT INFORMATION
  Report Type: Spontaneous
  Country: GB (occurrence: GB)
  Receive Date: 20160701
  Receipt Date: 20160701
  Transmission Date: 20161109
  Serious: Yes (Other)
  Sender: FDA-Public Use
  Company Number: GB-WATSON-2016-14044

PATIENT
  Age: 54 Year
  Sex: Female
  Weight: 46.72 kg

DRUGS (1)
  1. ALLOPURINOL (UNKNOWN) [Suspect]
     Active Substance: ALLOPURINOL
     Indication: GOUT
     Dosage: 300 MG, DAILY
     Route: 065
     Dates: start: 201601, end: 201605

REACTIONS (1)
  - Alopecia [Recovering/Resolving]
